FAERS Safety Report 7131061-7 (Version None)
Quarter: 2010Q4

REPORT INFORMATION
  Report Type: 
  Country: None (occurrence: None)
  Receive Date: 20101201
  Receipt Date: 20101129
  Transmission Date: 20110411
  Serious: Yes (Hospitalization)
  Sender: FDA-Public Use
  Company Number: KR-PFIZER INC-2010159805

PATIENT
  Age: 51 Year
  Sex: Male
  Weight: 77 kg

DRUGS (9)
  1. VORICONAZOLE [Suspect]
     Indication: ASPERGILLOSIS
     Dosage: 450 MG, 2X/DAY
     Route: 042
     Dates: start: 20071224, end: 20071224
  2. VORICONAZOLE [Suspect]
     Dosage: 300 MG, 2X/DAY
     Route: 042
     Dates: start: 20071225, end: 20080120
  3. SYNERCID [Concomitant]
     Indication: PNEUMONIA
     Dosage: 550 MG, 3X/DAY
     Route: 041
     Dates: start: 20080104, end: 20080123
  4. PREDNISOLONE [Concomitant]
     Indication: PYREXIA
     Dosage: 30 MG, 1X/DAY
     Route: 048
     Dates: start: 20071123, end: 20080125
  5. PREDNISOLONE [Concomitant]
     Indication: LYMPHOMA
  6. NEUTROGIN [Concomitant]
     Indication: BONE MARROW FAILURE
     Dosage: 250 UG, 1X/DAY
     Route: 058
     Dates: start: 20071122, end: 20080123
  7. URSODEOXYCHOLIC ACID [Concomitant]
     Dosage: UNK
     Dates: start: 20071126, end: 20080126
  8. MUCOSTA [Concomitant]
     Dosage: UNK
     Route: 048
     Dates: start: 20071126, end: 20080126
  9. HUMULIN R [Concomitant]
     Indication: DIABETES MELLITUS
     Dosage: 10 IU, 1X/DAY
     Route: 041
     Dates: start: 20071219, end: 20080119

REACTIONS (1)
  - PNEUMOTHORAX [None]
